FAERS Safety Report 11814613 (Version 1)
Quarter: 2015Q4

REPORT INFORMATION
  Report Type: Report from Study
  Country: US (occurrence: US)
  Receive Date: 20151209
  Receipt Date: 20151209
  Transmission Date: 20160305
  Serious: Yes (Hospitalization)
  Sender: FDA-Public Use
  Company Number: US-ABBVIE-15K-163-1512355-00

PATIENT
  Age: 67 Year
  Sex: Male
  Weight: 102.15 kg

DRUGS (3)
  1. ENALAPRIL [Concomitant]
     Active Substance: ENALAPRIL
     Indication: PRODUCT USED FOR UNKNOWN INDICATION
  2. ERYTHROMYCIN. [Suspect]
     Active Substance: ERYTHROMYCIN
     Indication: PNEUMONIA
     Route: 048
     Dates: start: 20151026, end: 20151030
  3. HUMIRA [Suspect]
     Active Substance: ADALIMUMAB
     Indication: RHEUMATOID ARTHRITIS
     Route: 058
     Dates: start: 2009, end: 201510

REACTIONS (10)
  - Lethargy [Recovering/Resolving]
  - Nephritis [Unknown]
  - Chronic kidney disease [Not Recovered/Not Resolved]
  - Drug hypersensitivity [Unknown]
  - Restless legs syndrome [Recovering/Resolving]
  - Asthenia [Recovering/Resolving]
  - Blood potassium decreased [Recovered/Resolved]
  - Weight decreased [Unknown]
  - Pneumonia viral [Recovering/Resolving]
  - Poor peripheral circulation [Recovering/Resolving]

NARRATIVE: CASE EVENT DATE: 2015
